FAERS Safety Report 6147011-6 (Version None)
Quarter: 2009Q2

REPORT INFORMATION
  Report Type: 
  Country: None (occurrence: None)
  Receive Date: 20090403
  Receipt Date: 20090323
  Transmission Date: 20091009
  Serious: Yes (Other)
  Sender: FDA-Public Use
  Company Number: MSTR-NO-0809S-0075

PATIENT
  Age: 26 Year
  Sex: Male

DRUGS (1)
  1. METASTRON [Suspect]
     Indication: METASTATIC PAIN
     Dosage: SINGLE DOSE, I.V.
     Route: 042
     Dates: start: 20080307, end: 20080307

REACTIONS (4)
  - ANAEMIA [None]
  - DISEASE PROGRESSION [None]
  - PAIN [None]
  - PROSTATE CANCER METASTATIC [None]
